FAERS Safety Report 4983121-4 (Version None)
Quarter: 2006Q2

REPORT INFORMATION
  Report Type: 
  Country: None (occurrence: None)
  Receive Date: 20060420
  Receipt Date: 20060410
  Transmission Date: 20061013
  Serious: Yes (Other)
  Sender: FDA-Public Use
  Company Number: 2006050257

PATIENT
  Sex: Male

DRUGS (4)
  1. XALATAN [Suspect]
     Indication: GLAUCOMA
     Dosage: 2 DROP (1 DROP, 2 IN 1 D)
  2. TRAVATAN (TRAVATAN) [Concomitant]
  3. TIMOLOL MALEATE [Concomitant]
  4. COSOPT [Concomitant]

REACTIONS (3)
  - DRUG ADMINISTRATION ERROR [None]
  - EYE OPERATION [None]
  - INCORRECT DOSE ADMINISTERED [None]
